FAERS Safety Report 8930265 (Version 2)
Quarter: 2013Q1

REPORT INFORMATION
  Report Type: Spontaneous
  Country: US (occurrence: US)
  Receive Date: 20121128
  Receipt Date: 20130111
  Transmission Date: 20140127
  Serious: Yes (Hospitalization)
  Sender: FDA-Public Use
  Company Number: US-GLAXOSMITHKLINE-A0814955A

PATIENT
  Age: 74 Year
  Sex: Female
  Weight: 95 kg

DRUGS (1)
  1. AVANDIA [Suspect]
     Indication: DIABETES MELLITUS
     Dosage: 4MG TWICE PER DAY
     Route: 048
     Dates: start: 20051025, end: 20090806

REACTIONS (2)
  - Myocardial infarction [Unknown]
  - Transient ischaemic attack [Unknown]
